FAERS Safety Report 9071147 (Version 1)
Quarter: 2013Q1

REPORT INFORMATION
  Report Type: Report from Study
  Country: US (occurrence: US)
  Receive Date: 20130129
  Receipt Date: 20130129
  Transmission Date: 20140127
  Serious: No
  Sender: FDA-Public Use
  Company Number: US-ABBOTT-12P-163-0934176-00

PATIENT
  Age: 55 Year
  Sex: Female

DRUGS (10)
  1. HUMIRA 40 MG/0.8 ML PEN [Suspect]
     Indication: RHEUMATOID ARTHRITIS
     Dates: start: 201203
  2. TRAMADOL [Concomitant]
     Indication: PAIN
     Dosage: 50MG DAILY
  3. SYNTHROID [Concomitant]
     Indication: HYPOTHYROIDISM
     Dosage: 25MCG DAILY
  4. IBUPROFEN [Concomitant]
     Indication: PAIN
     Dosage: THREE TIMES A DAY AS NEEDED
  5. VITAMIN D [Concomitant]
     Indication: VITAMIN SUPPLEMENTATION
     Dosage: 1000 U DAILY
  6. VITAMIN C [Concomitant]
     Indication: VITAMIN SUPPLEMENTATION
     Dosage: 500MG DAILY
  7. FISH OIL [Concomitant]
     Indication: VITAMIN SUPPLEMENTATION
  8. PROBIOTICS [Concomitant]
     Indication: SUPPLEMENTATION THERAPY
  9. VITAMIN B COMPLEX [Concomitant]
     Indication: VITAMIN SUPPLEMENTATION
  10. ASA [Concomitant]
     Indication: PROPHYLAXIS
     Dosage: 81MG DAILY

REACTIONS (2)
  - Injection site pruritus [Recovering/Resolving]
  - Injection site swelling [Recovering/Resolving]
